FAERS Safety Report 6278938-2 (Version None)
Quarter: 2009Q3

REPORT INFORMATION
  Report Type: 
  Country: None (occurrence: None)
  Receive Date: 20090723
  Receipt Date: 20090715
  Transmission Date: 20100115
  Serious: Yes (Other)
  Sender: FDA-Public Use
  Company Number: BR-JNJFOC-20090706285

PATIENT
  Age: 81 Year
  Sex: Male
  Weight: 62 kg

DRUGS (10)
  1. IMOSEC [Suspect]
     Route: 065
  2. IMOSEC [Suspect]
     Indication: DIARRHOEA
     Dosage: SOME TIMES TOOK 20 MG/DAY (10 TABLETS)
     Route: 065
  3. SIMVASTATIN [Concomitant]
     Indication: BLOOD CHOLESTEROL
  4. BUDESONIDE [Concomitant]
     Indication: DIARRHOEA
     Dosage: RECTAL WASH LIQUID 1 BOTTLE AT NIGHT (UNSPECIFIED VOLUME)
  5. OMEPRAZOLE [Concomitant]
     Indication: GASTRITIS
  6. ATENOLOL [Concomitant]
     Indication: HYPERTENSION
  7. TICLOPIDINE HCL [Concomitant]
     Indication: DRUG USE FOR UNKNOWN INDICATION
  8. IRON POLYMALTOSE [Concomitant]
     Indication: ANAEMIA
  9. METFORMIN HCL [Concomitant]
     Indication: DIABETES MELLITUS
  10. DOXAZOSIN MESILATE [Concomitant]
     Indication: URINARY RETENTION

REACTIONS (4)
  - CEREBRAL THROMBOSIS [None]
  - DRUG INEFFECTIVE [None]
  - FALL [None]
  - OVERDOSE [None]
